FAERS Safety Report 19509013 (Version 1)
Quarter: 2021Q3

REPORT INFORMATION
  Report Type: Spontaneous
  Country: US (occurrence: US)
  Receive Date: 20210708
  Receipt Date: 20210708
  Transmission Date: 20211014
  Serious: No
  Sender: FDA-Public Use
  Company Number: US-BAUSCH-BL-2021-022420

PATIENT
  Age: 63 Year
  Sex: Female
  Weight: 56.7 kg

DRUGS (3)
  1. XALATAN [Suspect]
     Active Substance: LATANOPROST
     Indication: PIGMENTARY GLAUCOMA
     Dosage: GREENSTONE (GENERIC) ONE DROP EACH EYE NIGHTLY.
     Route: 065
  2. LATANOPROST OPHTHALMIC SOLUTION 0.005% [Suspect]
     Active Substance: LATANOPROST
     Indication: PIGMENTARY GLAUCOMA
     Dosage: ONE DROP IN EACH EYE NIGHTLY
     Route: 047
  3. LATANOPROST SANDOZ [Suspect]
     Active Substance: LATANOPROST
     Indication: PIGMENTARY GLAUCOMA
     Dosage: ONE DROP EACH EYE NIGHTLY
     Route: 065
     Dates: start: 20210505

REACTIONS (1)
  - Intraocular pressure increased [Unknown]
